FAERS Safety Report 8594615-7 (Version None)
Quarter: 2012Q3

REPORT INFORMATION
  Report Type: 
  Country: None (occurrence: None)
  Receive Date: 20120815
  Receipt Date: 20120807
  Transmission Date: 20120928
  Serious: No
  Sender: FDA-Public Use
  Company Number: US-PFIZER INC-2012192707

PATIENT
  Sex: Male

DRUGS (5)
  1. LIPITOR [Concomitant]
     Dosage: UNK
  2. AMBIEN [Concomitant]
     Dosage: UNK
  3. FENTANYL [Concomitant]
     Dosage: UNK
  4. DEPO-TESTOSTERONE [Suspect]
     Indication: HYPOGONADISM
     Dosage: 200 MG, FORTNIGHTLY
     Route: 030
     Dates: start: 20090101
  5. ZOPITAN [Concomitant]
     Dosage: UNK

REACTIONS (2)
  - INJECTION SITE SWELLING [None]
  - INJECTION SITE PAIN [None]
